FAERS Safety Report 13413923 (Version 1)
Quarter: 2017Q2

REPORT INFORMATION
  Report Type: Spontaneous
  Country: US (occurrence: US)
  Receive Date: 20170407
  Receipt Date: 20170407
  Transmission Date: 20170830
  Serious: No
  Sender: FDA-Public Use
  Company Number: None

PATIENT

DRUGS (1)
  1. CARB/LEVO [Suspect]
     Active Substance: CARBIDOPA\LEVODOPA
     Dosage: CARB/LEVO 25-1OOMG?

REACTIONS (3)
  - Transcription medication error [None]
  - Drug dispensed to wrong patient [None]
  - Wrong patient received medication [None]
